FAERS Safety Report 6455385-1 (Version None)
Quarter: 2009Q4

REPORT INFORMATION
  Report Type: 
  Country: None (occurrence: None)
  Receive Date: 20091125
  Receipt Date: 20090820
  Transmission Date: 20100525
  Serious: No
  Sender: FDA-Public Use
  Company Number: US-ABBOTT-09P-163-0592947-00

PATIENT
  Sex: Male
  Weight: 82.628 kg

DRUGS (6)
  1. SIMCOR [Suspect]
     Indication: BLOOD CHOLESTEROL INCREASED
     Dosage: AT BEDTIME
     Dates: start: 20080801
  2. ASPIRIN [Concomitant]
     Indication: DRUG USE FOR UNKNOWN INDICATION
  3. COZAAR [Concomitant]
     Indication: DRUG USE FOR UNKNOWN INDICATION
  4. AVODART [Concomitant]
     Indication: DRUG USE FOR UNKNOWN INDICATION
  5. METANX [Concomitant]
     Indication: DRUG USE FOR UNKNOWN INDICATION
  6. PYRIDOXINE HCL [Concomitant]
     Indication: DRUG USE FOR UNKNOWN INDICATION

REACTIONS (2)
  - FLUSHING [None]
  - INCORRECT DOSE ADMINISTERED [None]
